FAERS Safety Report 21159400 (Version 1)
Quarter: 2022Q3

REPORT INFORMATION
  Report Type: Report from Study
  Country: US (occurrence: None)
  Receive Date: 20220802
  Receipt Date: 20220802
  Transmission Date: 20221027
  Serious: Yes (Hospitalization)
  Sender: FDA-Public Use
  Company Number: 2022A267581

PATIENT
  Sex: Female

DRUGS (1)
  1. TAGRISSO [Suspect]
     Active Substance: OSIMERTINIB
     Indication: Lung carcinoma cell type unspecified stage 0
     Route: 048

REACTIONS (6)
  - Bone pain [Unknown]
  - Chills [Unknown]
  - Pyrexia [Unknown]
  - Confusional state [Unknown]
  - Balance disorder [Unknown]
  - Blood sodium abnormal [Unknown]
